FAERS Safety Report 5466609-1 (Version None)
Quarter: 2007Q3

REPORT INFORMATION
  Report Type: 
  Country: None (occurrence: None)
  Receive Date: 20070925
  Receipt Date: 20070918
  Transmission Date: 20080115
  Serious: Yes (Other)
  Sender: FDA-Public Use
  Company Number: PHEH2007US12524

PATIENT
  Age: 64 Year
  Sex: Female
  Weight: 48.526 kg

DRUGS (1)
  1. ZOMETA [Suspect]
     Indication: METASTASES TO BONE
     Dosage: 4MG, Q 11 MONTHS
     Route: 042
     Dates: start: 20060616, end: 20070201

REACTIONS (3)
  - BONE DISORDER [None]
  - DENTAL CARE [None]
  - OSTEONECROSIS [None]
